FAERS Safety Report 5122893-5 (Version None)
Quarter: 2006Q4

REPORT INFORMATION
  Report Type: 
  Country: None (occurrence: None)
  Receive Date: 20061005
  Receipt Date: 20060927
  Transmission Date: 20070319
  Serious: Yes (Other)
  Sender: FDA-Public Use
  Company Number: HQWYE529924MAR06

PATIENT
  Age: 65 Year
  Sex: Male
  Weight: 96.25 kg

DRUGS (16)
  1. MYLOTARG [Suspect]
     Indication: ACUTE MYELOID LEUKAEMIA
     Dosage: 19  MG 1X PER 1 DAY, INTRAVENOUS
     Route: 042
     Dates: start: 20050409, end: 20050409
  2. MYLOTARG [Suspect]
     Indication: ACUTE MYELOID LEUKAEMIA
     Dosage: 19  MG 1X PER 1 DAY, INTRAVENOUS
     Route: 042
     Dates: start: 20050419, end: 20050419
  3. IMIPENEM (IMIPENEM) [Concomitant]
  4. TOBRAMYCIN [Concomitant]
  5. REGLAN [Concomitant]
  6. ACETAMINOPHEN [Concomitant]
  7. GUAIFENESIN (GUAIFENESIN) [Concomitant]
  8. PERCOCET [Concomitant]
  9. ACYCLOVIR [Concomitant]
  10. AMBIEN [Concomitant]
  11. DEMEROL [Concomitant]
  12. UNSPECIFIED ANTIFUNGAL [Concomitant]
  13. LASIX [Concomitant]
  14. PHYTONADIONE [Concomitant]
  15. ENSURE                    (AMINO ACIDS NOS/MINERALS NOS/VITAMINS NOS) [Concomitant]
  16. ZYVOX [Concomitant]

REACTIONS (4)
  - ALANINE AMINOTRANSFERASE DECREASED [None]
  - BLOOD ALKALINE PHOSPHATASE INCREASED [None]
  - BLOOD BILIRUBIN INCREASED [None]
  - WEIGHT INCREASED [None]
